FAERS Safety Report 6360239-5 (Version None)
Quarter: 2009Q3

REPORT INFORMATION
  Report Type: 
  Country: None (occurrence: None)
  Receive Date: 20090917
  Receipt Date: 20090911
  Transmission Date: 20100115
  Serious: Yes (Other)
  Sender: FDA-Public Use
  Company Number: ZA-ABBOTT-09P-143-0596762-00

PATIENT
  Sex: Male

DRUGS (1)
  1. EPILIM [Suspect]
     Indication: EPILEPSY
     Route: 065

REACTIONS (2)
  - AGGRESSION [None]
  - PSYCHOTIC DISORDER [None]
